FAERS Safety Report 23598899 (Version 2)
Quarter: 2025Q4

REPORT INFORMATION
  Report Type: Spontaneous
  Country: US (occurrence: US)
  Receive Date: 20240306
  Receipt Date: 20251120
  Transmission Date: 20260118
  Serious: Yes (Hospitalization, Other)
  Sender: AUROBINDO
  Company Number: US-MLMSERVICE-20231213-4719960-1

PATIENT
  Age: 59 Year
  Sex: Female

DRUGS (11)
  1. CLOZAPINE [Interacting]
     Active Substance: CLOZAPINE
     Indication: Bipolar disorder
     Dosage: DOSE GRADUALLY INCREASED TO 75 MG IN THE MORNING AND 125 MG IN THE EVENING
     Route: 065
  2. CLOZAPINE [Interacting]
     Active Substance: CLOZAPINE
     Indication: Depression
     Dosage: DOSE GRADUALLY INCREASED TO 75 MG IN THE MORNING AND 125 MG IN THE EVENING
     Route: 065
  3. CLOZAPINE [Interacting]
     Active Substance: CLOZAPINE
     Dosage: 25 MG IN THE MORNING AND 50 MG IN THE EVENING
     Route: 065
  4. CLOZAPINE [Interacting]
     Active Substance: CLOZAPINE
     Dosage: DOSE GRADUALLY INCREASED TO 75 MG IN THE MORNING AND 125 MG IN THE EVENING
     Route: 065
  5. CLOZAPINE [Interacting]
     Active Substance: CLOZAPINE
     Dosage: 25 MG IN THE MORNING AND 50 MG IN THE EVENING
     Route: 065
  6. CLOZAPINE [Interacting]
     Active Substance: CLOZAPINE
     Dosage: DOSE GRADUALLY INCREASED TO 75 MG IN THE MORNING AND 125 MG IN THE EVENING
     Route: 065
  7. CLOZAPINE [Interacting]
     Active Substance: CLOZAPINE
     Dosage: DOSE GRADUALLY INCREASED TO 75 MG IN THE MORNING AND 125 MG IN THE EVENING
     Route: 065
  8. CLOZAPINE [Interacting]
     Active Substance: CLOZAPINE
     Dosage: DOSE GRADUALLY INCREASED TO 75 MG IN THE MORNING AND 125 MG IN THE EVENING
     Route: 065
  9. CLOZAPINE [Interacting]
     Active Substance: CLOZAPINE
     Dosage: DAY 14 OF HOSPITALIZATION
     Route: 065
  10. LITHIUM [Interacting]
     Active Substance: LITHIUM
     Indication: Bipolar disorder
     Dosage: DAY 45 OF HOSPITALIZATION
     Route: 065
  11. LITHIUM [Interacting]
     Active Substance: LITHIUM
     Indication: Depression
     Dosage: DOSE WAS GRADUALLY INCREASED TO 450 MG IN THE EVENING BY DAY 50
     Route: 065

REACTIONS (2)
  - Myoclonus [Recovered/Resolved]
  - Drug interaction [Recovered/Resolved]
